FAERS Safety Report 18787775 (Version 1)
Quarter: 2021Q1

REPORT INFORMATION
  Report Type: Spontaneous
  Country: US (occurrence: US)
  Receive Date: 20210125
  Receipt Date: 20210125
  Transmission Date: 20210419
  Serious: No
  Sender: FDA-Public Use
  Company Number: US-ROCHE-2656837

PATIENT
  Sex: Female

DRUGS (4)
  1. METFORMIN HYDROCHLORIDE. [Concomitant]
     Active Substance: METFORMIN HYDROCHLORIDE
  2. OMEGA 3 FISH OILS [Concomitant]
     Active Substance: OMEGA-3 FATTY ACIDS
  3. LOSARTAN POTASSIUM. [Concomitant]
     Active Substance: LOSARTAN POTASSIUM
  4. RITUXAN [Suspect]
     Active Substance: RITUXIMAB
     Indication: BODY MASS INDEX
     Dosage: DAY 1 EVERY 4 WEEKS FOR 6 CYCLES
     Route: 042

REACTIONS (3)
  - Intentional product use issue [Unknown]
  - Insomnia [Unknown]
  - Off label use [Unknown]
